FAERS Safety Report 24921798 (Version 1)
Quarter: 2025Q1

REPORT INFORMATION
  Report Type: Spontaneous
  Country: US (occurrence: None)
  Receive Date: 20250203
  Receipt Date: 20250203
  Transmission Date: 20250409
  Serious: Yes (Hospitalization)
  Sender: FDA-CTU
  Company Number: None

PATIENT
  Age: 9 Year
  Sex: Male

DRUGS (9)
  1. PULMOZYME [Suspect]
     Active Substance: DORNASE ALFA
     Indication: Product used for unknown indication
     Dosage: FREQUENCY : DAILY;?
     Route: 055
     Dates: start: 20250108
  2. TOBRAMYCIN [Concomitant]
     Active Substance: TOBRAMYCIN
  3. BACLOFEN [Concomitant]
     Active Substance: BACLOFEN
  4. BUDESONIDE [Concomitant]
     Active Substance: BUDESONIDE
  5. ALBUTEROL [Concomitant]
     Active Substance: ALBUTEROL
  6. CETIRIZINE [Concomitant]
     Active Substance: CETIRIZINE HYDROCHLORIDE
  7. MONTELUKAST [Concomitant]
     Active Substance: MONTELUKAST
  8. KEPPRA [Concomitant]
     Active Substance: LEVETIRACETAM
  9. LEVOCARNITINE [Concomitant]
     Active Substance: LEVOCARNITINE

REACTIONS (1)
  - Influenza [None]
